FAERS Safety Report 7005255-5 (Version None)
Quarter: 2010Q3

REPORT INFORMATION
  Report Type: 
  Country: None (occurrence: None)
  Receive Date: 20100921
  Receipt Date: 20100908
  Transmission Date: 20110219
  Serious: Yes (Other)
  Sender: FDA-Public Use
  Company Number: PHHY2010JP59551

PATIENT
  Age: 37 Week
  Sex: Male
  Weight: 2.134 kg

DRUGS (2)
  1. CYCLOSPORINE [Suspect]
     Indication: CHOLESTASIS
  2. STEROIDS NOS [Concomitant]
     Indication: CHOLESTASIS

REACTIONS (3)
  - ASTHMA [None]
  - EPILEPSY [None]
  - INTERLEUKIN LEVEL INCREASED [None]
